FAERS Safety Report 17899821 (Version 1)
Quarter: 2020Q2

REPORT INFORMATION
  Report Type: Spontaneous
  Country: US (occurrence: US)
  Receive Date: 20200615
  Receipt Date: 20200615
  Transmission Date: 20200714
  Serious: Yes (Hospitalization)
  Sender: FDA-Public Use
  Company Number: None

PATIENT
  Age: 58 Year
  Sex: Male
  Weight: 81 kg

DRUGS (2)
  1. AMLODIPINE (AMLODIPINE BESYLATE 10MG TAB) [Suspect]
     Active Substance: AMLODIPINE BESYLATE
     Indication: HYPERTENSION
     Route: 048
     Dates: start: 20200307, end: 20200506
  2. GLIPIZIDE (GLIPIZIDE 10MG TAB) [Suspect]
     Active Substance: GLIPIZIDE
     Indication: DIABETES MELLITUS
     Route: 048
     Dates: start: 20190601, end: 20200506

REACTIONS (8)
  - Liver function test increased [None]
  - Chromaturia [None]
  - Cholangitis [None]
  - Hypophagia [None]
  - Blood bilirubin increased [None]
  - Abdominal pain [None]
  - Pruritus [None]
  - Jaundice [None]

NARRATIVE: CASE EVENT DATE: 20200506
